FAERS Safety Report 4351323-6 (Version None)
Quarter: 2004Q2

REPORT INFORMATION
  Report Type: 
  Country: None (occurrence: None)
  Receive Date: 20040428
  Receipt Date: 20040412
  Transmission Date: 20050107
  Serious: Yes (Other)
  Sender: FDA-Public Use
  Company Number: USA030640430

PATIENT
  Age: 73 Year
  Sex: Female
  Weight: 55 kg

DRUGS (10)
  1. EVISTA [Suspect]
     Indication: OSTEOPOROSIS
     Dosage: 60 MG/1 DAY
     Dates: start: 20020101, end: 20030701
  2. FORTEO [Suspect]
     Indication: OSTEOPOROSIS
     Dosage: 20 UG/1 DAY
     Dates: start: 20030117
  3. EVISTA [Concomitant]
  4. PERCOCET [Concomitant]
  5. OXYCONTIN [Concomitant]
  6. PRILOSEC [Concomitant]
  7. PAXIL [Concomitant]
  8. TRIAMTEREN/HYDROCHLOROTHIAZIDE [Concomitant]
  9. DICLYCLOMINE HYDROCHLORIDE [Concomitant]
  10. ATIVAN [Concomitant]

REACTIONS (20)
  - ANOREXIA [None]
  - ASTHENIA [None]
  - BACK PAIN [None]
  - BALANCE DISORDER [None]
  - CATARACT [None]
  - DIZZINESS [None]
  - DRUG EFFECT DECREASED [None]
  - FEELING ABNORMAL [None]
  - FEELING COLD [None]
  - INSOMNIA [None]
  - JOINT SWELLING [None]
  - MOBILITY DECREASED [None]
  - NAUSEA [None]
  - SPINAL COLUMN STENOSIS [None]
  - SPINAL FRACTURE [None]
  - THYROID DISORDER [None]
  - THYROID FUNCTION TEST ABNORMAL [None]
  - VISUAL ACUITY REDUCED [None]
  - VOMITING [None]
  - WEIGHT DECREASED [None]
